FAERS Safety Report 9585968 (Version 1)
Quarter: 2013Q4

REPORT INFORMATION
  Report Type: Spontaneous
  Country: US (occurrence: None)
  Receive Date: 20131002
  Receipt Date: 20131002
  Transmission Date: 20140711
  Serious: No
  Sender: FDA-Public Use
  Company Number: None

PATIENT
  Age: 80 Year
  Sex: Female

DRUGS (6)
  1. RITUXAN [Suspect]
     Indication: DIFFUSE LARGE B-CELL LYMPHOMA
  2. ONDANSETRON [Concomitant]
  3. FOSAPREPITANT [Concomitant]
  4. DEXAMETHASONE [Concomitant]
  5. DOXORUBICIN [Concomitant]
  6. CYCLOPHOSPHAMIDE [Suspect]

REACTIONS (1)
  - Urticaria [None]
